FAERS Safety Report 21402015 (Version 2)
Quarter: 2022Q4

REPORT INFORMATION
  Report Type: Spontaneous
  Country: IN (occurrence: IN)
  Receive Date: 20221003
  Receipt Date: 20221123
  Transmission Date: 20230113
  Serious: Yes (Other)
  Sender: FDA-Public Use
  Company Number: IN-CIPLA LTD.-2022IN05771

PATIENT
  Age: 30 Year
  Sex: Female

DRUGS (19)
  1. BUDESONIDE [Suspect]
     Active Substance: BUDESONIDE
     Indication: Product used for unknown indication
     Dosage: UNK, 4 HOURLY
  2. METOPROLOL [Suspect]
     Active Substance: METOPROLOL
     Indication: Preoperative care
     Dosage: 10 MILLIGRAM, QD
     Route: 065
  3. METOPROLOL [Suspect]
     Active Substance: METOPROLOL
     Indication: Peripartum cardiomyopathy
  4. CEFTRIAXONE [Suspect]
     Active Substance: CEFTRIAXONE
     Indication: Antibiotic therapy
     Dosage: 1 GRAM, BID
     Route: 042
  5. ONDANSETRON [Suspect]
     Active Substance: ONDANSETRON
     Indication: Respiratory disorder prophylaxis
     Dosage: 4 MILLIGRAM, UNK
     Route: 042
  6. PANTOPRAZOLE [Suspect]
     Active Substance: PANTOPRAZOLE
     Indication: Respiratory disorder prophylaxis
     Dosage: 40 MILLIGRAM, UNK
     Route: 042
  7. FUROSEMIDE [Suspect]
     Active Substance: FUROSEMIDE
     Indication: Preoperative care
     Dosage: 5 MILLIGRAM, QD (EVERY 24 HOURS)
     Route: 065
  8. FUROSEMIDE [Suspect]
     Active Substance: FUROSEMIDE
     Indication: Peripartum cardiomyopathy
  9. DEXAMETHASONE [Suspect]
     Active Substance: DEXAMETHASONE
     Indication: Product used for unknown indication
     Dosage: 12 MILLIGRAM, BID
     Route: 042
  10. METOCLOPRAMIDE [Suspect]
     Active Substance: METOCLOPRAMIDE
     Indication: Respiratory disorder prophylaxis
     Dosage: 10 MILLIGRAM, UNK
     Route: 042
  11. LACTATED RINGERS SOLUTION [Suspect]
     Active Substance: CALCIUM CHLORIDE\POTASSIUM CHLORIDE\SODIUM CHLORIDE\SODIUM LACTATE
     Indication: Product used for unknown indication
     Dosage: 500 MILLILITER, AT A RATE OF 4 ML/KG/HR
     Route: 065
  12. FENTANYL [Suspect]
     Active Substance: FENTANYL
     Indication: Spinal anaesthesia
     Dosage: 50 MICROGRAM, MIXED WITH 0.12% BUPIVACAINE, INTRAOPERATIVE
     Route: 008
  13. FENTANYL [Suspect]
     Active Substance: FENTANYL
     Dosage: 25 MICROGRAM, MIXED WITH BUPIVACAINE 0.125%
     Route: 065
  14. BUPIVACAINE [Suspect]
     Active Substance: BUPIVACAINE
     Indication: Spinal anaesthesia
     Dosage: 1.5 MILLILITER (HEAVY) (0.5 %)
     Route: 065
  15. BUPIVACAINE [Suspect]
     Active Substance: BUPIVACAINE
     Dosage: UNK, 0.12 % (MIXED WITH 50 UG FENTANYL), INTRAOPERATIVE
     Route: 065
  16. BUPIVACAINE [Suspect]
     Active Substance: BUPIVACAINE
     Dosage: UNK, 0.125% (MIXED WITH 25 ?G FENTANYL)
     Route: 065
  17. LIDOCAINE [Suspect]
     Active Substance: LIDOCAINE
     Indication: Epidural anaesthesia
     Dosage: 6 MILLILITER, UNK
     Route: 008
  18. HYDROCORTISONE [Suspect]
     Active Substance: HYDROCORTISONE
     Indication: Product used for unknown indication
     Dosage: 100 MILLIGRAM, UNK
     Route: 042
  19. OXYTOCIN [Suspect]
     Active Substance: OXYTOCIN
     Indication: Product used for unknown indication
     Dosage: UNK
     Route: 065

REACTIONS (2)
  - Premature delivery [Unknown]
  - Exposure during pregnancy [Unknown]
